FAERS Safety Report 7076741-7 (Version None)
Quarter: 2010Q4

REPORT INFORMATION
  Report Type: 
  Country: None (occurrence: None)
  Receive Date: 20101029
  Receipt Date: 20101029
  Transmission Date: 20110411
  Serious: No
  Sender: FDA-Public Use
  Company Number: None

PATIENT
  Sex: Female
  Weight: 67.1324 kg

DRUGS (1)
  1. SEROQUEL XR [Suspect]
     Indication: POST-TRAUMATIC STRESS DISORDER
     Dosage: 50MG 1 X DAY
     Dates: start: 20081215

REACTIONS (3)
  - DENTAL CARIES [None]
  - HYPERLIPIDAEMIA [None]
  - RENAL FAILURE CHRONIC [None]
